FAERS Safety Report 9319692 (Version 1)
Quarter: 2013Q2

REPORT INFORMATION
  Report Type: Other
  Country: GB (occurrence: GB)
  Receive Date: 20130530
  Receipt Date: 20130530
  Transmission Date: 20140414
  Serious: Yes (Other)
  Sender: FDA-Public Use
  Company Number: GB-WATSON-2013-09162

PATIENT
  Age: 36 Year
  Sex: Female

DRUGS (8)
  1. TOPIRAMATE (UNKNOWN) [Suspect]
     Indication: BIPOLAR DISORDER
     Dosage: 100 MG, BID
     Route: 048
     Dates: start: 201101, end: 201305
  2. TOPIRAMATE (UNKNOWN) [Suspect]
     Indication: BIPOLAR DISORDER
  3. LAMOTRIGINE (UNKNOWN) [Suspect]
     Indication: BIPOLAR DISORDER
     Dosage: 200 MG, BID
     Route: 048
     Dates: start: 201010
  4. LAMOTRIGINE (UNKNOWN) [Suspect]
     Indication: BIPOLAR DISORDER
  5. CO-CODAMOL [Concomitant]
     Indication: PAIN
     Dosage: 2 DF, QID
     Route: 048
     Dates: start: 20130315
  6. FEMODENE [Concomitant]
     Indication: CONTRACEPTION
     Dosage: 1 DF, DAILY
     Route: 048
  7. ESCITALOPRAM [Concomitant]
     Indication: BIPOLAR DISORDER
     Dosage: 20 MG, UNKNOWN
     Route: 048
     Dates: start: 20110505
  8. MOOD STABILIZER [Suspect]

REACTIONS (1)
  - Vitamin D deficiency [Unknown]
